FAERS Safety Report 7864484-9 (Version None)
Quarter: 2011Q4

REPORT INFORMATION
  Report Type: 
  Country: None (occurrence: None)
  Receive Date: 20111026
  Receipt Date: 20111010
  Transmission Date: 20120403
  Serious: Yes (Death, Hospitalization)
  Sender: FDA-Public Use
  Company Number: DSA_47851_2011

PATIENT
  Age: 77 Year
  Sex: Male

DRUGS (10)
  1. VOLTAREN [Concomitant]
  2. ENALAPRIL MALEATE AND HYDROCHLOROTHIAZIDE [Suspect]
     Indication: HYPERTENSION
     Dosage: (DF ORAL)
     Route: 048
     Dates: end: 20080101
  3. TRIVASTAL /00397201/ [Concomitant]
  4. EXELON [Concomitant]
  5. ACETAMINOPHEN [Concomitant]
  6. TANAKAN [Concomitant]
  7. SINEMET [Concomitant]
  8. CITAPRAM [Concomitant]
  9. MOTILIUM /00498201/ [Concomitant]
  10. PANTOPRAZOLE SODIUM [Concomitant]

REACTIONS (4)
  - DEMENTIA [None]
  - HYPOTENSION [None]
  - CONDITION AGGRAVATED [None]
  - MYOCARDIAL INFARCTION [None]
